FAERS Safety Report 10044137 (Version 1)
Quarter: 2014Q1

REPORT INFORMATION
  Report Type: Spontaneous
  Country: US (occurrence: None)
  Receive Date: 20140327
  Receipt Date: 20140327
  Transmission Date: 20141002
  Serious: Yes (Other)
  Sender: FDA-Public Use
  Company Number: None

PATIENT
  Age: 67 Year
  Sex: Male

DRUGS (3)
  1. TARCEVA [Suspect]
     Indication: LUNG NEOPLASM MALIGNANT
     Dosage: 1 TABLET, QD, ORAL
     Route: 048
     Dates: start: 20140314, end: 20140326
  2. NIFEDIPINE [Concomitant]
  3. AMLODIPINE [Concomitant]

REACTIONS (1)
  - Rash [None]
